FAERS Safety Report 8921404 (Version 2)
Quarter: 2014Q2

REPORT INFORMATION
  Report Type: Other
  Country: MX (occurrence: MX)
  Receive Date: 20121122
  Receipt Date: 20130827
  Transmission Date: 20141212
  Serious: No
  Sender: FDA-Public Use
  Company Number: PHHY2012MX105541

PATIENT
  Age: 82 Year
  Sex: Female

DRUGS (1)
  1. EXFORGE HCT [Suspect]
     Indication: HYPERTENSION
     Dosage: 1 DF, DAILY
     Route: 048
     Dates: start: 20120627

REACTIONS (1)
  - No adverse event [Unknown]
